FAERS Safety Report 13559778 (Version 2)
Quarter: 2017Q2

REPORT INFORMATION
  Report Type: Spontaneous
  Country: JP (occurrence: JP)
  Receive Date: 20170518
  Receipt Date: 20170518
  Transmission Date: 20170830
  Serious: Yes (Death, Life-Threatening, Hospitalization)
  Sender: FDA-Public Use
  Company Number: JP-ROCHE-1914592

PATIENT

DRUGS (1)
  1. AVASTIN [Suspect]
     Active Substance: BEVACIZUMAB
     Indication: MALIGNANT GLIOMA
     Dosage: DOSAGE IS UNCERTAIN.
     Route: 041

REACTIONS (2)
  - Impaired healing [Not Recovered/Not Resolved]
  - Malignant glioma [Fatal]
